FAERS Safety Report 18678543 (Version 1)
Quarter: 2020Q4

REPORT INFORMATION
  Report Type: Spontaneous
  Country: GR (occurrence: GR)
  Receive Date: 20201230
  Receipt Date: 20201230
  Transmission Date: 20210114
  Serious: Yes (Life-Threatening, Hospitalization, Other)
  Sender: FDA-Public Use
  Company Number: GR-JNJFOC-20201245867

PATIENT
  Age: 31 Year
  Sex: Male
  Weight: 67 kg

DRUGS (4)
  1. ALOPERIDIN [Suspect]
     Active Substance: HALOPERIDOL
     Indication: PERSISTENT DEPRESSIVE DISORDER
     Dosage: 6MG/ML
     Route: 030
     Dates: start: 20200420, end: 20200420
  2. ALOPERIDIN [HALOPERIDOL] [Concomitant]
     Indication: DEPRESSION
     Route: 065
  3. AKINETON [Concomitant]
     Active Substance: BIPERIDEN HYDROCHLORIDE
     Indication: DEPRESSION
     Dosage: AKINETON RETARD PROLONGED RELEASE TABLETS 4 MG
     Route: 065
  4. AKINETON [Concomitant]
     Active Substance: BIPERIDEN HYDROCHLORIDE
     Indication: DEPRESSION
     Route: 065

REACTIONS (8)
  - Constipation [Recovered/Resolved]
  - Reduced facial expression [Recovered/Resolved]
  - Neuroleptic malignant syndrome [Recovered/Resolved]
  - Salivary hypersecretion [Recovered/Resolved]
  - Tremor [Recovered/Resolved]
  - Muscular weakness [Recovered/Resolved]
  - Musculoskeletal stiffness [Recovered/Resolved]
  - Somnolence [Recovered/Resolved]

NARRATIVE: CASE EVENT DATE: 20200420
